FAERS Safety Report 9038454 (Version 1)
Quarter: 2013Q1

REPORT INFORMATION
  Report Type: Report from Study
  Country: US (occurrence: US)
  Receive Date: 20130129
  Receipt Date: 20130129
  Transmission Date: 20140127
  Serious: Yes (Other)
  Sender: FDA-Public Use
  Company Number: US-ROCHE-1183747

PATIENT
  Sex: 0

DRUGS (3)
  1. CAPECITABINE [Suspect]
     Indication: GASTROOESOPHAGEAL CANCER
     Dosage: FOR 14 DAYS
     Route: 065
  2. PACLITAXEL [Suspect]
     Indication: GASTROOESOPHAGEAL CANCER
     Route: 065
  3. CARBOPLATIN [Suspect]
     Indication: GASTROOESOPHAGEAL CANCER
     Dosage: 5 AUG DAY 1
     Route: 065

REACTIONS (4)
  - Nausea [Unknown]
  - Vomiting [Unknown]
  - Deafness [Unknown]
  - Neutropenia [Unknown]
